FAERS Safety Report 22589968 (Version 1)
Quarter: 2023Q2

REPORT INFORMATION
  Report Type: Spontaneous
  Country: US (occurrence: US)
  Receive Date: 20230612
  Receipt Date: 20230612
  Transmission Date: 20230722
  Serious: No
  Sender: FDA-Public Use
  Company Number: US-SA-SAC20230608001255

PATIENT
  Age: 55 Year
  Sex: Female

DRUGS (1)
  1. DUPIXENT [Suspect]
     Active Substance: DUPILUMAB
     Dosage: 300MG FREQUENCY: OTHER
     Route: 058
     Dates: start: 202302

REACTIONS (3)
  - Rash vesicular [Recovered/Resolved]
  - Rash erythematous [Recovered/Resolved]
  - Shoulder operation [Unknown]

NARRATIVE: CASE EVENT DATE: 20230101
